FAERS Safety Report 6801610-4 (Version None)
Quarter: 2010Q2

REPORT INFORMATION
  Report Type: 
  Country: None (occurrence: None)
  Receive Date: 20100629
  Receipt Date: 20100618
  Transmission Date: 20101027
  Serious: Yes (Other)
  Sender: FDA-Public Use
  Company Number: US-MERCK-1006USA03163

PATIENT
  Sex: Female

DRUGS (2)
  1. ISENTRESS [Suspect]
     Indication: PROPHYLAXIS AGAINST HIV INFECTION
     Route: 048
     Dates: start: 20100501
  2. TRUVADA [Concomitant]
     Route: 065

REACTIONS (3)
  - DERMATITIS ALLERGIC [None]
  - PHARYNGEAL OEDEMA [None]
  - SWELLING FACE [None]
